FAERS Safety Report 9351217 (Version 2)
Quarter: 2013Q3

REPORT INFORMATION
  Report Type: Spontaneous
  Country: JP (occurrence: JP)
  Receive Date: 20130617
  Receipt Date: 20130920
  Transmission Date: 20140515
  Serious: Yes (Hospitalization, Other)
  Sender: FDA-Public Use
  Company Number: JP-PFIZER INC-2013164688

PATIENT
  Age: 56 Year
  Sex: Male

DRUGS (4)
  1. LYRICA [Suspect]
     Indication: NEURALGIA
     Dosage: 25 MG, 2X/DAY, IN THE MORNING AND AT BEDTIME
     Route: 048
     Dates: start: 2010
  2. DESYREL [Suspect]
     Dosage: 25 MG/DAY
     Route: 048
  3. DEPAS [Suspect]
     Dosage: 1 MG, UNK
  4. ROHYPNOL [Suspect]
     Indication: INSOMNIA
     Dosage: 2 MG, UNK
     Route: 048

REACTIONS (2)
  - Loss of consciousness [Recovered/Resolved]
  - Fall [Recovered/Resolved]
